FAERS Safety Report 9547587 (Version 1)
Quarter: 2013Q3

REPORT INFORMATION
  Report Type: Spontaneous
  Country: US (occurrence: None)
  Receive Date: 20130923
  Receipt Date: 20130923
  Transmission Date: 20140515
  Serious: Yes (Other)
  Sender: FDA-Public Use
  Company Number: None

PATIENT
  Age: 58 Year
  Sex: Female

DRUGS (2)
  1. EGRIFTA [Suspect]
     Indication: LIPODYSTROPHY ACQUIRED
     Dates: start: 20130911
  2. EGRIFTA [Suspect]
     Indication: HIV INFECTION
     Dates: start: 20130911

REACTIONS (3)
  - Chest discomfort [None]
  - Paraesthesia [None]
  - Blood pressure increased [None]
